FAERS Safety Report 5023083-7 (Version None)
Quarter: 2006Q2

REPORT INFORMATION
  Report Type: 
  Country: None (occurrence: None)
  Receive Date: 20060612
  Receipt Date: 20060601
  Transmission Date: 20061013
  Serious: Yes (Other)
  Sender: FDA-Public Use
  Company Number: PHRM2006FR01722

PATIENT
  Age: 77 Year
  Sex: Male

DRUGS (3)
  1. TRIVASTAL [Concomitant]
     Route: 048
  2. DEPRENYL [Concomitant]
     Route: 048
  3. STALEVO 100 [Suspect]
     Indication: PARKINSON'S DISEASE
     Route: 048

REACTIONS (2)
  - EYE PAIN [None]
  - GLAUCOMA [None]
